FAERS Safety Report 9536219 (Version 1)
Quarter: 2013Q3

REPORT INFORMATION
  Report Type: Spontaneous
  Country: GB (occurrence: GB)
  Receive Date: 20130919
  Receipt Date: 20130919
  Transmission Date: 20140515
  Serious: Yes (Hospitalization)
  Sender: FDA-Public Use
  Company Number: GB-ACCORD-019390

PATIENT
  Age: 73 Year
  Sex: Male

DRUGS (7)
  1. CO-AMOXICLAV [Concomitant]
     Indication: PRODUCT USED FOR UNKNOWN INDICATION
     Route: 048
  2. OMEPRAZOLE [Concomitant]
     Indication: DYSPEPSIA
     Route: 048
  3. COSOPT [Concomitant]
     Indication: GLAUCOMA
     Dosage: 1 DROP
     Route: 047
  4. SYNALAR [Concomitant]
     Indication: PRODUCT USED FOR UNKNOWN INDICATION
     Route: 061
  5. BETNOVATE [Concomitant]
     Indication: ECZEMA
     Route: 061
  6. GEMCITABINE [Suspect]
     Indication: PANCREATIC CARCINOMA
     Route: 042
     Dates: start: 20130218
  7. INVESTIGATIONAL DRUG [Suspect]
     Indication: PANCREATIC CARCINOMA
     Route: 023
     Dates: start: 20130204

REACTIONS (1)
  - Biliary sepsis [Recovered/Resolved]
